FAERS Safety Report 6580782-3 (Version None)
Quarter: 2010Q1

REPORT INFORMATION
  Report Type: 
  Country: None (occurrence: None)
  Receive Date: 20100213
  Receipt Date: 20100201
  Transmission Date: 20100710
  Serious: Yes (Hospitalization)
  Sender: FDA-Public Use
  Company Number: US-ELI_LILLY_AND_COMPANY-US201002000817

PATIENT
  Sex: Female
  Weight: 72.109 kg

DRUGS (9)
  1. BYETTA [Suspect]
     Indication: TYPE 2 DIABETES MELLITUS
     Dosage: 5 UG, 2/D
     Route: 058
     Dates: start: 20091001, end: 20091101
  2. BUMETANIDE [Concomitant]
     Dosage: 2 MG, UNK
  3. TRAMADOL [Concomitant]
     Dosage: 25 MG, AS NEEDED
  4. DIOVAN [Concomitant]
     Dosage: 160 MG, DAILY (1/D)
  5. MULTI-VITAMIN [Concomitant]
     Dosage: UNK, DAILY (1/D)
  6. CIDER VINEGAR [Concomitant]
  7. GLUCOSAMINE/CHONDROITIN /01625901/ [Concomitant]
  8. MAGNESIUM [Concomitant]
  9. POTASSIUM                          /00031402/ [Concomitant]

REACTIONS (8)
  - BREAST CYST [None]
  - BREAST INFECTION [None]
  - CARDIAC PACEMAKER BATTERY REPLACEMENT [None]
  - NAUSEA [None]
  - OPEN WOUND [None]
  - PLEURISY [None]
  - WEIGHT DECREASED [None]
  - WEIGHT INCREASED [None]
